FAERS Safety Report 8781180 (Version 1)
Quarter: 2012Q4

REPORT INFORMATION
  Report Type: 
  Country: JP (occurrence: JP)
  Receive Date: 20120913
  Receipt Date: 20120913
  Transmission Date: 20130627
  Serious: Yes (Hospitalization)
  Sender: FDA-Public Use
  Company Number: JP-ROCHE-1070478

PATIENT
  Age: 74 Year
  Sex: Female
  Weight: 54 kg

DRUGS (12)
  1. ROCEPHIN [Suspect]
     Indication: INFECTION
     Dosage: Dosage is uncertain.
     Route: 041
     Dates: start: 20110520, end: 20110520
  2. FLOMOX [Suspect]
     Indication: INFECTION
     Route: 048
     Dates: start: 20110520, end: 20110524
  3. DEPAS [Concomitant]
     Route: 048
     Dates: end: 20110524
  4. AMLODIN [Concomitant]
     Route: 048
     Dates: end: 20110524
  5. BLOPRESS [Concomitant]
     Route: 048
     Dates: end: 20110524
  6. CRESTOR [Concomitant]
     Route: 048
     Dates: end: 20110524
  7. OMEPRAL [Concomitant]
     Route: 048
     Dates: end: 20110524
  8. LOXONIN [Concomitant]
     Route: 048
     Dates: end: 20110524
  9. ZESULAN [Concomitant]
     Dosage: Dosage is uncertain.
     Route: 048
     Dates: end: 20110524
  10. UBRETID [Concomitant]
     Route: 048
     Dates: end: 20110525
  11. UBRETID [Concomitant]
     Route: 048
     Dates: start: 20110609
  12. BRUFEN [Concomitant]
     Route: 048
     Dates: end: 20110524

REACTIONS (2)
  - Erythema multiforme [Recovered/Resolved]
  - Blood creatine phosphokinase increased [Recovered/Resolved]
